FAERS Safety Report 24154266 (Version 1)
Quarter: 2024Q3

REPORT INFORMATION
  Report Type: Spontaneous
  Country: CA (occurrence: CA)
  Receive Date: 20240730
  Receipt Date: 20240730
  Transmission Date: 20241016
  Serious: Yes (Other)
  Sender: BEIGENE
  Company Number: CA-BEIGENE-BGN-2024-011461

PATIENT

DRUGS (3)
  1. BRUKINSA [Suspect]
     Active Substance: ZANUBRUTINIB
     Indication: Chronic lymphocytic leukaemia
  2. BICALUTAMIDE [Concomitant]
     Active Substance: BICALUTAMIDE
     Indication: Prostate cancer
  3. GOSERELIN [Concomitant]
     Active Substance: GOSERELIN
     Indication: Prostate cancer

REACTIONS (2)
  - Electrocardiogram QT prolonged [Unknown]
  - Chronic obstructive pulmonary disease [Unknown]
